FAERS Safety Report 5649837-1 (Version None)
Quarter: 2008Q1

REPORT INFORMATION
  Report Type: 
  Country: None (occurrence: None)
  Receive Date: 20080304
  Receipt Date: 20080221
  Transmission Date: 20080703
  Serious: Yes (Other)
  Sender: FDA-Public Use
  Company Number: GB-PFIZER INC-2008018192

PATIENT
  Sex: Male

DRUGS (1)
  1. CHANTIX [Suspect]
     Indication: SMOKING CESSATION THERAPY
     Route: 048

REACTIONS (9)
  - ABDOMINAL PAIN UPPER [None]
  - DEPRESSION [None]
  - DYSPEPSIA [None]
  - ERECTILE DYSFUNCTION [None]
  - INSOMNIA [None]
  - NAUSEA [None]
  - PARANOIA [None]
  - THERAPEUTIC RESPONSE UNEXPECTED [None]
  - VOMITING [None]
